FAERS Safety Report 18599899 (Version 1)
Quarter: 2020Q4

REPORT INFORMATION
  Report Type: Spontaneous
  Country: US (occurrence: US)
  Receive Date: 20201209
  Receipt Date: 20201209
  Transmission Date: 20210114
  Serious: No
  Sender: FDA-Public Use
  Company Number: None

PATIENT
  Age: 24 Year
  Sex: Female
  Weight: 56.25 kg

DRUGS (5)
  1. COLLAGEN GUMMY [Concomitant]
  2. MULTIVITAMIN GUMMY [Concomitant]
  3. PANTOPRAZOLE ER 40MG [Concomitant]
  4. ETONOGESTREL/ETHINYL ESTRADIOL [Suspect]
     Active Substance: ETHINYL ESTRADIOL\ETONOGESTREL
     Indication: CONTRACEPTION
     Dosage: ?          QUANTITY:1 RING;?
     Route: 067
     Dates: start: 20201206, end: 20201207
  5. CHOLESTYRAMINE POWDER [Concomitant]
     Active Substance: CHOLESTYRAMINE

REACTIONS (10)
  - Muscular weakness [None]
  - Pain [None]
  - Inflammation [None]
  - Vaginal haemorrhage [None]
  - Vulvovaginal discomfort [None]
  - Uterine spasm [None]
  - Nausea [None]
  - Depressed mood [None]
  - Product substitution issue [None]
  - Crying [None]

NARRATIVE: CASE EVENT DATE: 20201207
